FAERS Safety Report 14210908 (Version 1)
Quarter: 2017Q4

REPORT INFORMATION
  Report Type: Spontaneous
  Country: US (occurrence: US)
  Receive Date: 20171121
  Receipt Date: 20171121
  Transmission Date: 20180321
  Serious: No
  Sender: FDA-Public Use
  Company Number: US-BAUSCH-BL-2017-027695

PATIENT
  Age: 78 Year
  Sex: Female

DRUGS (1)
  1. LOTEMAX [Suspect]
     Active Substance: LOTEPREDNOL ETABONATE
     Indication: POSTOPERATIVE CARE
     Dosage: LEFT EYE- 2 DROPS TOTAL
     Route: 047
     Dates: start: 20170908, end: 20170909

REACTIONS (6)
  - Foreign body sensation in eyes [Unknown]
  - Eye irritation [Recovered/Resolved]
  - Eye disorder [Not Recovered/Not Resolved]
  - Nausea [Recovered/Resolved]
  - Intraocular pressure test abnormal [Unknown]
  - Eye pain [Recovered/Resolved]

NARRATIVE: CASE EVENT DATE: 201709
